FAERS Safety Report 6592877-9 (Version None)
Quarter: 2010Q1

REPORT INFORMATION
  Report Type: 
  Country: None (occurrence: None)
  Receive Date: 20100212
  Receipt Date: 20100203
  Transmission Date: 20100710
  Serious: Yes (Other)
  Sender: FDA-Public Use
  Company Number: 2010SP005085

PATIENT
  Age: 39 Year
  Sex: Female
  Weight: 60 kg

DRUGS (5)
  1. PUREGON (FOLLIROPIN BETA /01348901/ [Suspect]
     Indication: ARTIFICIAL INSEMINATION BY DONOR
     Dosage: 50 IU; SC; 50 IU; SC; 50 IU; SC
     Route: 058
     Dates: start: 20090815, end: 20090821
  2. PUREGON (FOLLIROPIN BETA /01348901/ [Suspect]
     Indication: ARTIFICIAL INSEMINATION BY DONOR
     Dosage: 50 IU; SC; 50 IU; SC; 50 IU; SC
     Route: 058
     Dates: start: 20090910, end: 20090914
  3. PUREGON (FOLLIROPIN BETA /01348901/ [Suspect]
     Indication: ARTIFICIAL INSEMINATION BY DONOR
     Dosage: 50 IU; SC; 50 IU; SC; 50 IU; SC
     Route: 058
     Dates: start: 20091003, end: 20091009
  4. OVITRELLE [Concomitant]
  5. PROGEFFIK [Concomitant]

REACTIONS (3)
  - CONDITION AGGRAVATED [None]
  - MYOPIA [None]
  - TREATMENT FAILURE [None]
